FAERS Safety Report 15685180 (Version 1)
Quarter: 2018Q4

REPORT INFORMATION
  Report Type: Spontaneous
  Country: US (occurrence: US)
  Receive Date: 20181204
  Receipt Date: 20181204
  Transmission Date: 20190205
  Serious: Yes (Hospitalization, Other)
  Sender: FDA-Public Use
  Company Number: US-MYLANLABS-2018M1088060

PATIENT
  Age: 74 Year
  Sex: Male

DRUGS (4)
  1. CARBOPLATIN. [Suspect]
     Active Substance: CARBOPLATIN
     Indication: PLEURAL MESOTHELIOMA MALIGNANT
     Dosage: AREA UNDER CURVE OF 5
     Route: 065
  2. IPILIMUMAB [Suspect]
     Active Substance: IPILIMUMAB
     Indication: IMMUNE SYSTEM DISORDER
     Dosage: EVERY 6 WEEKS
     Route: 041
  3. PEMETREXED. [Suspect]
     Active Substance: PEMETREXED
     Indication: PLEURAL MESOTHELIOMA MALIGNANT
     Route: 065
  4. NIVOLUMAB [Suspect]
     Active Substance: NIVOLUMAB
     Indication: IMMUNE SYSTEM DISORDER
     Dosage: EVERY 2 WEEKS
     Route: 041

REACTIONS (2)
  - Opsoclonus myoclonus [Recovered/Resolved]
  - Ataxia [Recovering/Resolving]
